FAERS Safety Report 12620902 (Version 1)
Quarter: 2016Q3

REPORT INFORMATION
  Report Type: Spontaneous
  Country: US (occurrence: None)
  Receive Date: 20160803
  Receipt Date: 20160803
  Transmission Date: 20161109
  Serious: Yes (Other)
  Sender: FDA-Public Use
  Company Number: None

PATIENT
  Sex: Female
  Weight: 93.9 kg

DRUGS (1)
  1. CAPECITABINE, 500MG ACCORD HEALTHCARE [Suspect]
     Active Substance: CAPECITABINE
     Indication: COLON CANCER
     Dosage: QD X 7 DAYS Q  2WKS
     Route: 048
     Dates: start: 20150805

REACTIONS (2)
  - Burning sensation [None]
  - Dizziness [None]
